FAERS Safety Report 5405375-2 (Version None)
Quarter: 2007Q3

REPORT INFORMATION
  Report Type: 
  Country: None (occurrence: None)
  Receive Date: 20070803
  Receipt Date: 20070723
  Transmission Date: 20080115
  Serious: Yes (Hospitalization)
  Sender: FDA-Public Use
  Company Number: JP-PFIZER INC-2007063546

PATIENT
  Age: 57 Year
  Sex: Male

DRUGS (9)
  1. MIGLITOL TABLET [Suspect]
     Indication: DIABETES MELLITUS
     Route: 048
     Dates: start: 20070410, end: 20070717
  2. AMARYL [Concomitant]
     Indication: DIABETES MELLITUS
     Route: 048
  3. ACTOS [Concomitant]
     Route: 048
  4. ASPIRIN [Concomitant]
     Route: 048
  5. PAXIL [Concomitant]
     Route: 048
  6. FAMOTIDINE [Concomitant]
     Route: 048
  7. DEPAS [Concomitant]
     Route: 048
  8. CANDESARTAN CILEXETIL [Concomitant]
     Route: 048
  9. ATELEC [Concomitant]
     Route: 048

REACTIONS (3)
  - ALANINE AMINOTRANSFERASE INCREASED [None]
  - ASPARTATE AMINOTRANSFERASE INCREASED [None]
  - HEPATIC FUNCTION ABNORMAL [None]
